FAERS Safety Report 7681223-5 (Version None)
Quarter: 2011Q3

REPORT INFORMATION
  Report Type: 
  Country: None (occurrence: None)
  Receive Date: 20110804
  Receipt Date: 20110728
  Transmission Date: 20111222
  Serious: Yes (Other)
  Sender: FDA-Public Use
  Company Number: DSA_47304_2011

PATIENT
  Sex: Female

DRUGS (1)
  1. XENAZINE [Suspect]
     Indication: HUNTINGTON'S DISEASE
     Dosage: 25 MG TID ORAL
     Route: 048
     Dates: start: 20090311, end: 20110728

REACTIONS (3)
  - URINARY TRACT INFECTION [None]
  - ABASIA [None]
  - INCONTINENCE [None]
